FAERS Safety Report 5498111-5 (Version None)
Quarter: 2007Q4

REPORT INFORMATION
  Report Type: 
  Country: None (occurrence: None)
  Receive Date: 20071025
  Receipt Date: 20071018
  Transmission Date: 20080405
  Serious: Yes (Hospitalization)
  Sender: FDA-Public Use
  Company Number: FR-ROXANE LABORATORIES, INC-2007-BP-22923RO

PATIENT
  Age: 57 Year
  Sex: Male

DRUGS (9)
  1. PREDNISONE [Suspect]
     Indication: SYSTEMIC LUPUS ERYTHEMATOSUS
     Route: 048
     Dates: start: 20041201
  2. METHOTREXATE [Suspect]
     Indication: SYSTEMIC LUPUS ERYTHEMATOSUS
     Dates: end: 20040701
  3. HYDROXYCHLOROQUINE SULFATE [Suspect]
     Indication: SYSTEMIC LUPUS ERYTHEMATOSUS
     Dates: end: 20040101
  4. HYDROXYCHLOROQUINE SULFATE [Suspect]
     Dates: start: 20041201
  5. SULPHADIAZINE [Suspect]
     Indication: INFECTION
     Route: 061
  6. AMOXICILLIN [Suspect]
     Indication: INFECTION
  7. SALAZOPYRINE [Concomitant]
     Dates: end: 20040701
  8. METHYLPREDNISOLONE [Concomitant]
     Indication: SYSTEMIC LUPUS ERYTHEMATOSUS
     Route: 042
     Dates: start: 20041201
  9. ACYCLOVIR [Concomitant]
     Indication: SYSTEMIC ANTIVIRAL TREATMENT
     Route: 042

REACTIONS (3)
  - DRUG INEFFECTIVE FOR UNAPPROVED INDICATION [None]
  - HEPATITIS ACUTE [None]
  - HERPES SIMPLEX [None]
